FAERS Safety Report 17324546 (Version 4)
Quarter: 2020Q1

REPORT INFORMATION
  Report Type: Spontaneous
  Country: JP (occurrence: JP)
  Receive Date: 20200127
  Receipt Date: 20200310
  Transmission Date: 20200409
  Serious: Yes (Other)
  Sender: FDA-Public Use
  Company Number: JP-BRISTOL-MYERS SQUIBB COMPANY-BMS-2019-101135

PATIENT
  Age: 70 Year
  Sex: Male
  Weight: 61.5 kg

DRUGS (11)
  1. CILOSTAZOL. [Concomitant]
     Active Substance: CILOSTAZOL
     Indication: AORTIC STENOSIS
     Dosage: 50 MILLIGRAM, Q12H
     Route: 048
     Dates: start: 20181024
  2. ATORVASTATIN [ATORVASTATIN CALCIUM TRIHYDRATE] [Concomitant]
     Active Substance: ATORVASTATIN CALCIUM TRIHYDRATE
     Indication: HYPERURICAEMIA
     Dosage: 20 MILLIGRAM, QD
     Route: 048
     Dates: start: 20181024
  3. ALLOPURINOL. [Concomitant]
     Active Substance: ALLOPURINOL
     Indication: HYPERURICAEMIA
     Dosage: 100 MILLIGRAM, QD
     Route: 048
  4. DERMOVATE [Concomitant]
     Active Substance: CLOBETASOL
     Indication: PRODUCT USED FOR UNKNOWN INDICATION
     Dosage: UNK
     Route: 003
     Dates: start: 20190903, end: 20191015
  5. OPDIVO [Suspect]
     Active Substance: NIVOLUMAB
     Indication: RENAL CELL CARCINOMA STAGE IV
     Dosage: 240 MG, Q3W
     Route: 041
     Dates: start: 20190820, end: 20190910
  6. EPADEL [EICOSAPENTAENOIC ACID ETHYL ESTER] [Concomitant]
     Indication: ARTERIOSCLEROSIS
     Dosage: 900 MILLIGRAM, Q12H
     Route: 048
     Dates: start: 20190819
  7. YERVOY [Suspect]
     Active Substance: IPILIMUMAB
     Indication: RENAL CELL CARCINOMA STAGE IV
     Dosage: 62 MILLIGRAM
     Route: 041
     Dates: start: 20190820, end: 20190820
  8. ANORO [Concomitant]
     Active Substance: UMECLIDINIUM BROMIDE\VILANTEROL TRIFENATATE
     Indication: CHRONIC OBSTRUCTIVE PULMONARY DISEASE
     Dosage: UNK, QD
     Dates: start: 20190906
  9. RANMARK [Concomitant]
     Active Substance: DENOSUMAB
     Indication: RENAL CELL CARCINOMA STAGE IV
     Dosage: 120 MILLIGRAM, Q4WK
     Route: 058
     Dates: start: 20190730
  10. TALION [BEPOTASTINE BESILATE] [Concomitant]
     Active Substance: BEPOTASTINE BESYLATE
     Indication: RHINITIS ALLERGIC
     Dosage: 10 MILLIGRAM, BID
     Route: 048
     Dates: start: 20190830, end: 20190930
  11. CHLORPHENIRAMINE MALEATE. [Concomitant]
     Active Substance: CHLORPHENIRAMINE MALEATE
     Indication: PRODUCT USED FOR UNKNOWN INDICATION
     Dosage: UNK
     Route: 003
     Dates: start: 20190903, end: 20191015

REACTIONS (3)
  - Toxic skin eruption [Recovered/Resolved]
  - Rhinitis allergic [Recovering/Resolving]
  - Infusion related reaction [Recovered/Resolved]

NARRATIVE: CASE EVENT DATE: 20190830
